FAERS Safety Report 7079511-9 (Version None)
Quarter: 2010Q4

REPORT INFORMATION
  Report Type: 
  Country: None (occurrence: None)
  Receive Date: 20101102
  Receipt Date: 20101020
  Transmission Date: 20110411
  Serious: Yes (Other)
  Sender: FDA-Public Use
  Company Number: CA-GENENTECH-290212

PATIENT
  Sex: Male

DRUGS (2)
  1. XOLAIR [Suspect]
     Indication: ASTHMA
     Dosage: 225 MG, Q2W
     Route: 058
     Dates: start: 20090508
  2. XOLAIR [Suspect]
     Dosage: 225 MG, Q2W
     Route: 058
     Dates: start: 20090805

REACTIONS (5)
  - ASTHMA [None]
  - INFECTION [None]
  - OBSTRUCTIVE AIRWAYS DISORDER [None]
  - PAIN IN EXTREMITY [None]
  - SINUSITIS [None]
